FAERS Safety Report 16795553 (Version 1)
Quarter: 2019Q3

REPORT INFORMATION
  Report Type: Spontaneous
  Country: US (occurrence: US)
  Receive Date: 20190720
  Receipt Date: 20190720
  Transmission Date: 20191005
  Serious: Yes (Other)
  Sender: FDA-Public Use
  Company Number: None

PATIENT
  Age: 6 Year
  Sex: Female
  Weight: 26.4 kg

DRUGS (12)
  1. HEPARIN FLUSH [Concomitant]
     Active Substance: HEPARIN SODIUM
  2. SODIUM ACETATE. [Concomitant]
     Active Substance: SODIUM ACETATE
  3. MICAFUNGIN. [Concomitant]
     Active Substance: MICAFUNGIN SODIUM
  4. CHOLECALCIFEROL [Concomitant]
     Active Substance: CHOLECALCIFEROL
  5. VINCRISTINE [Concomitant]
     Active Substance: VINCRISTINE
  6. MIDAZOLAM [Concomitant]
     Active Substance: MIDAZOLAM HYDROCHLORIDE
  7. METHOTREXATE. [Concomitant]
     Active Substance: METHOTREXATE
  8. URSODIOL. [Concomitant]
     Active Substance: URSODIOL
  9. ONDANSETRON [Concomitant]
     Active Substance: ONDANSETRON
  10. VORICONAZOLE. [Concomitant]
     Active Substance: VORICONAZOLE
  11. IXAZOMIB [Suspect]
     Active Substance: IXAZOMIB
     Indication: ACUTE LYMPHOCYTIC LEUKAEMIA
     Dosage: 1.4MG 1X/DAY 1, 4, (8, 15, AND 18-PATIENT DID NOT RECEIVE)?
     Route: 048
     Dates: start: 20190603, end: 20190606
  12. PROPOFOL. [Concomitant]
     Active Substance: PROPOFOL

REACTIONS (3)
  - Alanine aminotransferase increased [None]
  - Aspartate aminotransferase increased [None]
  - Therapy cessation [None]

NARRATIVE: CASE EVENT DATE: 20190614
